FAERS Safety Report 9059121 (Version 1)
Quarter: 2013Q1

REPORT INFORMATION
  Report Type: Spontaneous
  Country: US (occurrence: US)
  Receive Date: 20130211
  Receipt Date: 20130211
  Transmission Date: 20140127
  Serious: No
  Sender: FDA-Public Use
  Company Number: US-BRISTOL-MYERS SQUIBB COMPANY-16937211

PATIENT
  Age: 56 Year
  Sex: Female

DRUGS (3)
  1. GLUCOPHAGE [Suspect]
  2. LANTUS [Suspect]
     Dosage: 1 DF= 100 UNITS. PARENTERAL INJ
     Route: 058
     Dates: start: 201206
  3. GLYBURIDE [Suspect]

REACTIONS (1)
  - Blood glucose increased [Unknown]
